FAERS Safety Report 8234584 (Version 2)
Quarter: 2013Q3

REPORT INFORMATION
  Report Type: Spontaneous
  Country: US (occurrence: US)
  Receive Date: 20111107
  Receipt Date: 20130708
  Transmission Date: 20140515
  Serious: No
  Sender: FDA-Public Use
  Company Number: US-AMGEN-USASP2011048326

PATIENT
  Age: 61 Year
  Sex: Female

DRUGS (1)
  1. ENBREL [Suspect]
     Indication: RHEUMATOID ARTHRITIS
     Dosage: 50 MG, QWK
     Route: 065
     Dates: start: 20110821

REACTIONS (12)
  - Abdominal pain upper [Unknown]
  - Asthenia [Unknown]
  - Lethargy [Unknown]
  - Pyrexia [Unknown]
  - Injection site bruising [Recovered/Resolved]
  - Injection site mass [Not Recovered/Not Resolved]
  - Injection site reaction [Recovered/Resolved]
  - Injection site erythema [Not Recovered/Not Resolved]
  - Injection site urticaria [Not Recovered/Not Resolved]
  - Injection site pruritus [Not Recovered/Not Resolved]
  - Injection site pain [Not Recovered/Not Resolved]
  - Influenza [Not Recovered/Not Resolved]
